FAERS Safety Report 20111118 (Version 1)
Quarter: 2021Q4

REPORT INFORMATION
  Report Type: Spontaneous
  Country: US (occurrence: US)
  Receive Date: 20211125
  Receipt Date: 20211125
  Transmission Date: 20220303
  Serious: No
  Sender: FDA-Public Use
  Company Number: US-JNJFOC-20211131585

PATIENT
  Sex: Female

DRUGS (1)
  1. CHILDRENS ZYRTEC [Suspect]
     Active Substance: CETIRIZINE HYDROCHLORIDE
     Indication: Product used for unknown indication
     Dosage: I DON^T KNOW HOW MUCH SHE DRANK. I HAVE LIKE AN ALMOST EMPTY BOTTLE AND BEFORE SHE MESSED WITH IT I
     Route: 065

REACTIONS (1)
  - Accidental overdose [Unknown]
